FAERS Safety Report 20453938 (Version 1)
Quarter: 2022Q1

REPORT INFORMATION
  Report Type: Spontaneous
  Country: US (occurrence: None)
  Receive Date: 20220209
  Receipt Date: 20220209
  Transmission Date: 20220423
  Serious: Yes (Other)
  Sender: FDA-Public Use
  Company Number: None

PATIENT
  Age: 41 Year
  Sex: Male
  Weight: 80.55 kg

DRUGS (7)
  1. EVUSHELD [Suspect]
     Active Substance: CILGAVIMAB\TIXAGEVIMAB
     Indication: Prophylaxis
     Dosage: OTHER FREQUENCY : ONCE?
     Route: 030
     Dates: start: 20220128, end: 20220128
  2. SINGULAIR [Concomitant]
     Active Substance: MONTELUKAST SODIUM
     Dates: start: 20190327
  3. SPIRIVA RESPIMAT [Concomitant]
     Active Substance: TIOTROPIUM BROMIDE
     Dates: start: 20220110
  4. advair diskus 500-50 mcg [Concomitant]
     Dates: start: 20220110
  5. azelastine 0.1% nasal spray [Concomitant]
     Dates: start: 20210630
  6. albuterol 90mcg [Concomitant]
     Dates: start: 20180831
  7. privigen 10% injection [Concomitant]
     Dates: start: 20160204

REACTIONS (8)
  - Pyrexia [None]
  - Chest discomfort [None]
  - Haemoptysis [None]
  - Bronchiectasis [None]
  - Lung opacity [None]
  - Atelectasis [None]
  - Inflammation [None]
  - Pulmonary alveolar haemorrhage [None]

NARRATIVE: CASE EVENT DATE: 20220204
